FAERS Safety Report 5622743-4 (Version None)
Quarter: 2008Q1

REPORT INFORMATION
  Report Type: 
  Country: None (occurrence: None)
  Receive Date: 20080212
  Receipt Date: 20080201
  Transmission Date: 20080703
  Serious: Yes (Hospitalization)
  Sender: FDA-Public Use
  Company Number: US-JNJFOC-20050604240

PATIENT
  Sex: Male
  Weight: 87.8 kg

DRUGS (17)
  1. TMC114 [Suspect]
     Route: 048
  2. TMC114 [Suspect]
     Indication: HIV INFECTION
     Dosage: BLINDED
     Route: 048
  3. RITONAVIR [Suspect]
     Indication: HIV INFECTION
     Route: 048
  4. LAMIVUDINE [Concomitant]
     Indication: HIV INFECTION
     Route: 048
  5. ABACAVIR [Concomitant]
     Indication: HIV INFECTION
     Route: 048
  6. STAVUDINE [Concomitant]
     Indication: HIV INFECTION
     Route: 048
  7. ENFUVIRTIDE [Concomitant]
     Indication: HIV INFECTION
     Route: 058
  8. TENOFOVIR DISOPROXIL FUMARATE [Concomitant]
     Indication: HIV INFECTION
     Route: 048
  9. CITALOPRAM HYDROBROMIDE [Concomitant]
     Indication: DEPRESSION
     Dosage: STARTED PRE-TRIAL
     Route: 048
  10. PARACETAMOL [Concomitant]
     Indication: HEADACHE
     Route: 048
  11. TEMAZEPAM [Concomitant]
     Indication: INSOMNIA
     Route: 048
  12. VITAMIN CAP [Concomitant]
     Indication: MEDICAL DIET
     Route: 048
  13. TESTOSTERONE [Concomitant]
     Indication: HYPOGONADISM
     Route: 030
  14. BACTRIM [Concomitant]
     Indication: ANTIFUNGAL PROPHYLAXIS
     Dosage: STARTED PRE-TRIAL
     Route: 048
  15. LORAZEPAM [Concomitant]
     Indication: ANXIETY
     Route: 048
  16. CALCIUM CARBONATE [Concomitant]
     Indication: MEDICAL DIET
     Route: 048
  17. ALDARA [Concomitant]
     Indication: PENIS CARCINOMA
     Route: 061

REACTIONS (2)
  - ACUTE MYOCARDIAL INFARCTION [None]
  - CORONARY ARTERY DISEASE [None]
